FAERS Safety Report 14585360 (Version 1)
Quarter: 2018Q1

REPORT INFORMATION
  Report Type: Spontaneous
  Country: TH (occurrence: TH)
  Receive Date: 20180301
  Receipt Date: 20180301
  Transmission Date: 20180509
  Serious: Yes (Death, Hospitalization, Other)
  Sender: FDA-Public Use
  Company Number: TH-BAYER-2018-033712

PATIENT
  Age: 74 Year
  Sex: Female

DRUGS (1)
  1. REGORAFENIB [Suspect]
     Active Substance: REGORAFENIB
     Indication: GASTROINTESTINAL STROMAL CANCER
     Dosage: 120 MG DAILY
     Route: 048

REACTIONS (5)
  - Confusional state [None]
  - Posterior reversible encephalopathy syndrome [None]
  - General physical health deterioration [Fatal]
  - Hyperammonaemic encephalopathy [None]
  - Hypertension [None]
